FAERS Safety Report 5896002-9 (Version None)
Quarter: 2008Q3

REPORT INFORMATION
  Report Type: 
  Country: None (occurrence: None)
  Receive Date: 20080924
  Receipt Date: 20080402
  Transmission Date: 20090109
  Serious: No
  Sender: FDA-Public Use
  Company Number: NO-PFIZER INC-2008026809

PATIENT
  Sex: Female

DRUGS (5)
  1. ZOLOFT [Suspect]
     Indication: DEPRESSION
     Route: 048
     Dates: start: 19980319, end: 19980601
  2. CIPRAMIL [Suspect]
     Indication: DEPRESSION
     Route: 048
     Dates: start: 19981120, end: 19990601
  3. CIPRALEX [Suspect]
     Indication: DEPRESSION
     Route: 048
     Dates: start: 20050104, end: 20050124
  4. TRIPHASIL-21 [Concomitant]
     Indication: CONTRACEPTION
  5. IMOVANE [Concomitant]
     Indication: INSOMNIA
     Route: 048

REACTIONS (5)
  - CONDITION AGGRAVATED [None]
  - DEPRESSION [None]
  - DRUG INTOLERANCE [None]
  - HALLUCINATION [None]
  - NO ADVERSE EVENT [None]
